FAERS Safety Report 18847963 (Version 1)
Quarter: 2021Q1

REPORT INFORMATION
  Report Type: Spontaneous
  Country: US (occurrence: US)
  Receive Date: 20210204
  Receipt Date: 20210204
  Transmission Date: 20210419
  Serious: Yes (Other)
  Sender: FDA-Public Use
  Company Number: US-GLAXOSMITHKLINE-US2021022927

PATIENT
  Sex: Female

DRUGS (3)
  1. VENTOLIN HFA [Suspect]
     Active Substance: ALBUTEROL SULFATE
     Indication: PRODUCT USED FOR UNKNOWN INDICATION
     Dosage: 1 DF, Z, USES IT ONCE OR TWICE PER DAY
     Dates: start: 2019
  2. BIPAP [Concomitant]
     Active Substance: DEVICE
     Indication: PRODUCT USED FOR UNKNOWN INDICATION
     Dosage: UNK
  3. OXYGEN. [Concomitant]
     Active Substance: OXYGEN
     Indication: PRODUCT USED FOR UNKNOWN INDICATION
     Dosage: UNK

REACTIONS (7)
  - Wrong technique in product usage process [Unknown]
  - Renal haemorrhage [Unknown]
  - Cognitive disorder [Unknown]
  - Lung disorder [Unknown]
  - Pulmonary haemorrhage [Unknown]
  - Central nervous system vasculitis [Not Recovered/Not Resolved]
  - Cerebral disorder [Not Recovered/Not Resolved]
